FAERS Safety Report 7006984-X (Version None)
Quarter: 2010Q3

REPORT INFORMATION
  Report Type: 
  Country: None (occurrence: None)
  Receive Date: 20100922
  Receipt Date: 20100913
  Transmission Date: 20110219
  Serious: Yes (Other)
  Sender: FDA-Public Use
  Company Number: US-JNJFOC-20100905022

PATIENT
  Sex: Female
  Weight: 81.65 kg

DRUGS (1)
  1. ELMIRON [Suspect]
     Indication: CYSTITIS INTERSTITIAL
     Route: 048

REACTIONS (3)
  - ALOPECIA [None]
  - INCORRECT DOSE ADMINISTERED [None]
  - URINARY TRACT INFECTION [None]
